FAERS Safety Report 13303733 (Version 4)
Quarter: 2017Q2

REPORT INFORMATION
  Report Type: Report from Study
  Country: US (occurrence: US)
  Receive Date: 20170307
  Receipt Date: 20170426
  Transmission Date: 20170830
  Serious: Yes (Other)
  Sender: FDA-Public Use
  Company Number: US-BEH-2017078469

PATIENT
  Age: 63 Year
  Sex: Female

DRUGS (6)
  1. HIZENTRA [Suspect]
     Active Substance: HUMAN IMMUNOGLOBULIN G
     Dosage: 30.20 ML/H, PER SITE
     Route: 058
     Dates: start: 20161209, end: 20170301
  2. DIAZEPAM. [Concomitant]
     Active Substance: DIAZEPAM
     Indication: SEIZURE
     Dosage: 7.5 MG, HS
     Route: 048
  3. GABAPENTIN. [Concomitant]
     Active Substance: GABAPENTIN
     Indication: EPILEPSY
     Dosage: 200 MG, QID
     Route: 048
  4. HIZENTRA [Suspect]
     Active Substance: HUMAN IMMUNOGLOBULIN G
     Dosage: 35 ML, UNK
     Route: 058
     Dates: start: 20170301
  5. HIZENTRA [Suspect]
     Active Substance: HUMAN IMMUNOGLOBULIN G
     Indication: HYPOGAMMAGLOBULINAEMIA
     Dosage: 30.20 ML/H, PER SITE
     Route: 058
     Dates: start: 20161202, end: 20161202
  6. DIAZEPAM. [Concomitant]
     Active Substance: DIAZEPAM
     Dosage: 7.5 MG, DAILY PRN
     Route: 048

REACTIONS (28)
  - Eye infection viral [Not Recovered/Not Resolved]
  - Seizure [Recovered/Resolved]
  - Infusion site nodule [Recovering/Resolving]
  - Infusion site swelling [Recovered/Resolved]
  - Myalgia [Not Recovered/Not Resolved]
  - Seizure [Recovered/Resolved]
  - Eye inflammation [Not Recovered/Not Resolved]
  - Muscle injury [Not Recovered/Not Resolved]
  - Infusion site erythema [Recovered/Resolved]
  - Lacrimation increased [Recovering/Resolving]
  - Blepharospasm [Recovering/Resolving]
  - Eye infection staphylococcal [Recovered/Resolved]
  - Chest pain [Not Recovered/Not Resolved]
  - Ocular vascular disorder [Recovering/Resolving]
  - Infusion site erythema [Recovered/Resolved]
  - Seizure [Recovered/Resolved]
  - Induration [Recovered/Resolved]
  - Cat scratch disease [Unknown]
  - Photosensitivity reaction [Recovered/Resolved]
  - Lyme disease [Not Recovered/Not Resolved]
  - Seizure [Recovered/Resolved]
  - Alopecia [Not Recovered/Not Resolved]
  - Eye pain [Recovering/Resolving]
  - Eye pain [Recovering/Resolving]
  - Loss of personal independence in daily activities [Not Recovered/Not Resolved]
  - Infusion site bruising [Recovered/Resolved]
  - Feeling abnormal [Recovered/Resolved]
  - Infection [Unknown]

NARRATIVE: CASE EVENT DATE: 20161202
